FAERS Safety Report 6613491-2 (Version None)
Quarter: 2010Q1

REPORT INFORMATION
  Report Type: 
  Country: None (occurrence: None)
  Receive Date: 20100304
  Receipt Date: 20100223
  Transmission Date: 20100710
  Serious: Yes (Hospitalization, Other)
  Sender: FDA-Public Use
  Company Number: US-JNJFOC-20091205449

PATIENT
  Sex: Female
  Weight: 47.63 kg

DRUGS (12)
  1. TYLENOL W/ CODEINE [Suspect]
     Indication: FIBROMYALGIA
     Route: 065
  2. SAVELLA [Suspect]
     Indication: FIBROMYALGIA
     Route: 048
  3. SAVELLA [Suspect]
     Route: 048
  4. SAVELLA [Suspect]
     Route: 048
  5. SAVELLA [Suspect]
     Route: 048
  6. LIPITOR [Concomitant]
     Indication: BLOOD CHOLESTEROL INCREASED
  7. METOPROLOL TARTRATE [Concomitant]
     Indication: HYPERTENSION
  8. ZETIA [Concomitant]
     Indication: BLOOD CHOLESTEROL INCREASED
  9. ATIVAN [Concomitant]
     Indication: ANXIETY
  10. ATIVAN [Concomitant]
  11. NORVASC [Concomitant]
     Indication: HYPERTENSION
  12. ASPIRIN [Concomitant]

REACTIONS (1)
  - MENTAL STATUS CHANGES [None]
